FAERS Safety Report 4416818-5 (Version None)
Quarter: 2004Q3

REPORT INFORMATION
  Report Type: 
  Country: None (occurrence: None)
  Receive Date: 20040802
  Receipt Date: 20040725
  Transmission Date: 20050211
  Serious: Yes (Death)
  Sender: FDA-Public Use
  Company Number: 2004UW15667

PATIENT

DRUGS (1)
  1. NEXIUM [Suspect]

REACTIONS (1)
  - CARDIAC DISORDER [None]
